FAERS Safety Report 8954531 (Version 1)
Quarter: 2012Q4

REPORT INFORMATION
  Report Type: 
  Country: US (occurrence: US)
  Receive Date: 20121207
  Receipt Date: 20121207
  Transmission Date: 20130627
  Serious: No
  Sender: FDA-Public Use
  Company Number: US-BAYER-2012-121858

PATIENT
  Age: 60 Year
  Sex: Male
  Weight: 122.45 kg

DRUGS (5)
  1. BETASERON [Suspect]
     Dosage: 0.25 mg, QOD
     Route: 058
  2. VITAMIN B COMPLEX [Concomitant]
  3. VITAMIN D [Concomitant]
  4. MULTIVITAMIN [Concomitant]
  5. OMEGA 3 [Concomitant]
     Dosage: 1000 mg, UNK

REACTIONS (2)
  - Eye movement disorder [Unknown]
  - Vision blurred [Unknown]
